FAERS Safety Report 5094791-7 (Version None)
Quarter: 2006Q3

REPORT INFORMATION
  Report Type: 
  Country: None (occurrence: None)
  Receive Date: 20060731
  Receipt Date: 20060413
  Transmission Date: 20061208
  Serious: No
  Sender: FDA-Public Use
  Company Number: 2006PV012032

PATIENT
  Age: 57 Year
  Sex: Female

DRUGS (5)
  1. BYETTA [Suspect]
     Dosage: SEE IMAGE
     Route: 058
     Dates: start: 20051101
  2. BYETTA [Suspect]
  3. AMARYL [Concomitant]
  4. FORTAMET [Concomitant]
  5. AVANDIA [Concomitant]

REACTIONS (2)
  - BLOOD GLUCOSE DECREASED [None]
  - DRUG INEFFECTIVE FOR UNAPPROVED INDICATION [None]
